FAERS Safety Report 9742685 (Version 1)
Quarter: 2013Q4

REPORT INFORMATION
  Report Type: Spontaneous
  Country: US (occurrence: US)
  Receive Date: 20131210
  Receipt Date: 20131210
  Transmission Date: 20140711
  Serious: No
  Sender: FDA-Public Use
  Company Number: US-GILEAD-2009-0025366

PATIENT
  Sex: Female
  Weight: 86.18 kg

DRUGS (7)
  1. LETAIRIS [Suspect]
     Indication: PULMONARY ARTERIAL HYPERTENSION
     Route: 048
     Dates: start: 20091016
  2. DILTIAZEM [Concomitant]
  3. LASIX [Concomitant]
  4. POTASSIUM [Concomitant]
  5. ALOE VERA [Concomitant]
  6. GUARANA [Concomitant]
  7. BOOST HIGH PROTEIN POWDER [Concomitant]

REACTIONS (4)
  - Chest pain [Unknown]
  - Pain in extremity [Unknown]
  - Palpitations [Unknown]
  - Local swelling [Unknown]
